FAERS Safety Report 4652341-0 (Version None)
Quarter: 2005Q2

REPORT INFORMATION
  Report Type: 
  Country: None (occurrence: None)
  Receive Date: 20050504
  Receipt Date: 20050421
  Transmission Date: 20051028
  Serious: Yes (Hospitalization)
  Sender: FDA-Public Use
  Company Number: JP-GLAXOSMITHKLINE-B0378996A

PATIENT
  Age: 47 Year
  Sex: Male

DRUGS (3)
  1. EPIVIR [Suspect]
     Indication: ACQUIRED IMMUNODEFICIENCY SYNDROME
     Dosage: 150MG TWICE PER DAY
     Route: 048
     Dates: start: 20001215
  2. VIRACEPT [Suspect]
     Indication: ACQUIRED IMMUNODEFICIENCY SYNDROME
     Route: 048
     Dates: start: 20001215
  3. RECOMBINATE [Concomitant]
     Route: 042
     Dates: start: 20040401

REACTIONS (2)
  - HYPERSPLENISM [None]
  - VARICES OESOPHAGEAL [None]
